FAERS Safety Report 18722904 (Version 1)
Quarter: 2021Q1

REPORT INFORMATION
  Report Type: Spontaneous
  Country: ES (occurrence: ES)
  Receive Date: 20210111
  Receipt Date: 20210111
  Transmission Date: 20210419
  Serious: Yes (Hospitalization)
  Sender: FDA-Public Use
  Company Number: NVSC2021ES000684

PATIENT
  Age: 85 Year
  Sex: Female
  Weight: 61 kg

DRUGS (4)
  1. AZITROMICINA [Suspect]
     Active Substance: AZITHROMYCIN DIHYDRATE
     Indication: COVID-19
     Dosage: 500 MG, QD (500MH PRIMER DIA, DESPUES 250 MG)
     Route: 048
     Dates: start: 20200325, end: 20200329
  2. AZITROMICINA [Interacting]
     Active Substance: AZITHROMYCIN DIHYDRATE
     Dosage: 500 MG, QD (500MH PRIMER DIA, DESPUES 250 MG)
     Route: 048
     Dates: start: 20200329
  3. HIDROXICLOROQUINA [Interacting]
     Active Substance: HYDROXYCHLOROQUINE
     Dosage: 400 MG, Q48H (2 DAYS) (400MG PRIMER DIA DESPUES 200MG)
     Route: 048
     Dates: start: 20200402
  4. HIDROXICLOROQUINA [Interacting]
     Active Substance: HYDROXYCHLOROQUINE
     Indication: COVID-19
     Dosage: 400 MG, Q48H (2 DAYS) (400MG PRIMER DIA DESPUES 200MG)
     Route: 048
     Dates: start: 20200325

REACTIONS (1)
  - Long QT syndrome [Recovered/Resolved]

NARRATIVE: CASE EVENT DATE: 20200330
